FAERS Safety Report 5193925-3 (Version None)
Quarter: 2006Q4

REPORT INFORMATION
  Report Type: 
  Country: None (occurrence: None)
  Receive Date: 20061228
  Receipt Date: 20061219
  Transmission Date: 20070319
  Serious: Yes (Hospitalization)
  Sender: FDA-Public Use
  Company Number: 2006UW28272

PATIENT
  Age: 52 Year
  Sex: Female

DRUGS (6)
  1. ESOMEPRAZOLE MAGNESIUM [Suspect]
     Indication: BILE DUCT CANCER
     Route: 048
     Dates: start: 20060126
  2. BLINDED TRIAL MEDICATION [Suspect]
     Indication: CEREBROVASCULAR ACCIDENT
     Route: 048
  3. ONDANSETRON HCL [Suspect]
     Indication: VOMITING
     Route: 048
     Dates: start: 20060130
  4. ONDANSETRON HCL [Suspect]
     Indication: NAUSEA
     Route: 048
     Dates: start: 20060130
  5. PANCREATIN TRIPLE STRENGTH CAP [Suspect]
     Indication: BILE DUCT CANCER
     Route: 048
     Dates: start: 20060403, end: 20060919
  6. PROMETHAZINE HCL [Suspect]
     Dates: start: 20060208

REACTIONS (4)
  - DEHYDRATION [None]
  - NAUSEA [None]
  - URINARY TRACT INFECTION [None]
  - VOMITING [None]
